FAERS Safety Report 14760562 (Version 2)
Quarter: 2018Q4

REPORT INFORMATION
  Report Type: Spontaneous
  Country: US (occurrence: US)
  Receive Date: 20180414
  Receipt Date: 20181129
  Transmission Date: 20190204
  Serious: Yes (Death, Other)
  Sender: FDA-Public Use
  Company Number: US-ASTRAZENECA-2018SE44425

PATIENT
  Age: 25694 Day
  Sex: Female
  Weight: 86.2 kg

DRUGS (78)
  1. LEVOTHROID [Concomitant]
     Active Substance: LEVOTHYROXINE SODIUM
     Dates: start: 20040830, end: 20060805
  2. METHYLPREDNISOLONE. [Concomitant]
     Active Substance: METHYLPREDNISOLONE
     Dates: start: 20050110, end: 20070615
  3. COZAAR [Concomitant]
     Active Substance: LOSARTAN POTASSIUM
     Dates: start: 20091108, end: 20100215
  4. SERTRALINE [Concomitant]
     Active Substance: SERTRALINE HYDROCHLORIDE
     Dates: start: 20061215, end: 20130410
  5. PEPTO-BISMOL [Concomitant]
     Active Substance: BISMUTH SUBSALICYLATE
     Dates: start: 1998, end: 1999
  6. DOXYCYCLINE. [Concomitant]
     Active Substance: DOXYCYCLINE
     Dates: start: 20000913, end: 20160408
  7. MAXALT [Concomitant]
     Active Substance: RIZATRIPTAN BENZOATE
     Dates: start: 20011203
  8. LAMISIL [Concomitant]
     Active Substance: TERBINAFINE HYDROCHLORIDE
     Dates: start: 20030716
  9. PERCOCET [Concomitant]
     Active Substance: ACETAMINOPHEN\OXYCODONE HYDROCHLORIDE
     Dates: start: 20050205
  10. FLUTICASONE. [Concomitant]
     Active Substance: FLUTICASONE
     Dates: start: 20070826, end: 20150911
  11. METHADONE [Concomitant]
     Active Substance: METHADONE HYDROCHLORIDE
     Dates: start: 20151112, end: 20160503
  12. PROCTOSOL [Concomitant]
     Dates: start: 20150323, end: 20151016
  13. NEXIUM [Suspect]
     Active Substance: ESOMEPRAZOLE MAGNESIUM
     Indication: GASTROOESOPHAGEAL REFLUX DISEASE
     Route: 048
     Dates: start: 20050906, end: 20140417
  14. PREVACID [Suspect]
     Active Substance: LANSOPRAZOLE
     Indication: GASTROOESOPHAGEAL REFLUX DISEASE
     Route: 065
     Dates: start: 20000523, end: 20060310
  15. METOCLOPRAMIDE. [Concomitant]
     Active Substance: METOCLOPRAMIDE
     Dates: start: 20050307
  16. SIMVASTATIN. [Concomitant]
     Active Substance: SIMVASTATIN
     Dates: start: 20061215, end: 20160606
  17. CYMBALTA [Concomitant]
     Active Substance: DULOXETINE HYDROCHLORIDE
     Dates: start: 20080828, end: 20081202
  18. CRESTOR [Concomitant]
     Active Substance: ROSUVASTATIN CALCIUM
     Dates: start: 20090123
  19. VITAMIN D [Concomitant]
     Active Substance: CHOLECALCIFEROL
     Dates: start: 1998, end: 2017
  20. PREVACID [Suspect]
     Active Substance: LANSOPRAZOLE
     Indication: GASTROOESOPHAGEAL REFLUX DISEASE
     Route: 065
     Dates: start: 20000523
  21. PANTOPRAZOLE [Suspect]
     Active Substance: PANTOPRAZOLE
     Indication: GASTROOESOPHAGEAL REFLUX DISEASE
     Route: 065
     Dates: start: 20080227
  22. OXYCODONE/OXYCONTIN [Concomitant]
     Dates: start: 20050124, end: 20091110
  23. NABUMETONE. [Concomitant]
     Active Substance: NABUMETONE
     Dates: start: 20060601
  24. TIZANIDINE. [Concomitant]
     Active Substance: TIZANIDINE
     Dates: start: 20081024, end: 20150429
  25. ESCITALOPRAM [Concomitant]
     Active Substance: ESCITALOPRAM OXALATE
     Dates: start: 20160620
  26. DYRENIUM [Concomitant]
     Active Substance: TRIAMTERENE
     Dates: start: 20090928
  27. ZANTAC [Concomitant]
     Active Substance: RANITIDINE HYDROCHLORIDE
     Dates: start: 2016, end: 2017
  28. ERY TAB [Concomitant]
     Dates: start: 20000314, end: 20030217
  29. IMITREX [Concomitant]
     Active Substance: SUMATRIPTAN SUCCINATE
     Dates: start: 20010209
  30. PROMETHAZINE HYDROCHLORIDE. [Concomitant]
     Active Substance: PROMETHAZINE HYDROCHLORIDE
     Dates: start: 20030116
  31. ZYRTEC [Concomitant]
     Active Substance: CETIRIZINE HYDROCHLORIDE
     Dates: start: 20030511, end: 20070508
  32. VIOXX [Concomitant]
     Active Substance: ROFECOXIB
     Dates: start: 20030930
  33. ESTRADIOL. [Concomitant]
     Active Substance: ESTRADIOL
     Dates: start: 20040830
  34. BENZONATATE. [Concomitant]
     Active Substance: BENZONATATE
     Dates: start: 20070708, end: 20160415
  35. TRAZODONE [Concomitant]
     Active Substance: TRAZODONE HYDROCHLORIDE
     Dates: start: 20050205, end: 20150112
  36. SPIRONOLACTONE. [Concomitant]
     Active Substance: SPIRONOLACTONE
     Dates: start: 20131007, end: 20160609
  37. CLOTRIMAZOLE. [Concomitant]
     Active Substance: CLOTRIMAZOLE
     Dates: start: 20151104
  38. BUMETANIDE. [Concomitant]
     Active Substance: BUMETANIDE
     Dates: start: 20150115, end: 20160601
  39. VITAMIN B COMPLEX [Concomitant]
     Active Substance: CYANOCOBALAMIN\DEXPANTHENOL\NIACINAMIDE\PYRIDOXINE HYDROCHLORIDE\RIBOFLAVIN 5^-PHOSPHATE SODIUM\THIAMINE HYDROCHLORIDE\VITAMIN B COMPLEX
     Dates: start: 1998, end: 2017
  40. ZANTAC [Concomitant]
     Active Substance: RANITIDINE HYDROCHLORIDE
     Dates: start: 2016, end: 2017
  41. OMEPRAZOLE. [Suspect]
     Active Substance: OMEPRAZOLE
     Indication: GASTROOESOPHAGEAL REFLUX DISEASE
     Route: 065
     Dates: start: 20141205, end: 201702
  42. PREVACID [Suspect]
     Active Substance: LANSOPRAZOLE
     Indication: GASTROOESOPHAGEAL REFLUX DISEASE
     Dosage: GENERIC
     Route: 065
     Dates: start: 20110902, end: 20120604
  43. HYDROCO/APAP [Concomitant]
     Active Substance: ACETAMINOPHEN\HYDROCODONE
     Dates: start: 20000523, end: 20021230
  44. TOBRA DEX [Concomitant]
     Dates: start: 20000915
  45. CELEBREX [Concomitant]
     Active Substance: CELECOXIB
     Dates: start: 20001120, end: 20041108
  46. MECLIZINE [Concomitant]
     Active Substance: MECLIZINE HYDROCHLORIDE
     Dates: start: 20040610, end: 20040818
  47. LEVAQUIN [Concomitant]
     Active Substance: LEVOFLOXACIN
     Dates: start: 20031020
  48. CARISOPRODOL. [Concomitant]
     Active Substance: CARISOPRODOL
     Dates: start: 20041007, end: 20070703
  49. NEURONTIN [Concomitant]
     Active Substance: GABAPENTIN
     Dates: start: 20050124, end: 20050307
  50. AVAPRO [Concomitant]
     Active Substance: IRBESARTAN
     Dates: start: 20050429, end: 20060112
  51. BISACODYL. [Concomitant]
     Active Substance: BISACODYL
     Dates: start: 20151014
  52. VENLAFAXINE [Concomitant]
     Active Substance: VENLAFAXINE HYDROCHLORIDE
     Dates: end: 20160601
  53. ZETIA [Concomitant]
     Active Substance: EZETIMIBE
     Dates: start: 20070826, end: 20090104
  54. LYRICA [Concomitant]
     Active Substance: PREGABALIN
     Dates: start: 20080519, end: 20080528
  55. AMLODIPINE [Concomitant]
     Active Substance: AMLODIPINE BESYLATE
     Dates: start: 20091207, end: 20131027
  56. MAALOX ANTACID [Concomitant]
     Active Substance: ALUMINUM HYDROXIDE\DIMETHICONE\MAGNESIUM HYDROXIDE
     Dates: start: 1998, end: 1999
  57. NEXIUM [Suspect]
     Active Substance: ESOMEPRAZOLE MAGNESIUM
     Indication: GASTROOESOPHAGEAL REFLUX DISEASE
     Route: 048
     Dates: start: 2000, end: 2017
  58. NEXIUM [Suspect]
     Active Substance: ESOMEPRAZOLE MAGNESIUM
     Indication: GASTROOESOPHAGEAL REFLUX DISEASE
     Route: 048
     Dates: start: 20050906
  59. OMEPRAZOLE. [Suspect]
     Active Substance: OMEPRAZOLE
     Indication: GASTROOESOPHAGEAL REFLUX DISEASE
     Route: 048
     Dates: start: 20130708
  60. OMEPRAZOLE. [Suspect]
     Active Substance: OMEPRAZOLE
     Indication: GASTROOESOPHAGEAL REFLUX DISEASE
     Route: 065
     Dates: start: 20141205
  61. ZITHROMAX [Concomitant]
     Active Substance: AZITHROMYCIN DIHYDRATE
     Dates: start: 20000328, end: 20051101
  62. CEFACLOR. [Concomitant]
     Active Substance: CEFACLOR
     Dates: start: 20010516
  63. PEPCID AC [Concomitant]
     Active Substance: FAMOTIDINE
     Dates: start: 2016, end: 2017
  64. NEXIUM [Suspect]
     Active Substance: ESOMEPRAZOLE MAGNESIUM
     Indication: GASTROOESOPHAGEAL REFLUX DISEASE
     Route: 048
     Dates: start: 20050906, end: 20140417
  65. PREVACID [Suspect]
     Active Substance: LANSOPRAZOLE
     Indication: GASTROOESOPHAGEAL REFLUX DISEASE
     Route: 065
     Dates: start: 2000, end: 2017
  66. TOBRAMYCIN. [Concomitant]
     Active Substance: TOBRAMYCIN
     Dates: start: 20000320
  67. LORAZEPAM. [Concomitant]
     Active Substance: LORAZEPAM
     Dates: start: 20001124, end: 20150817
  68. ALBUTEROL. [Concomitant]
     Active Substance: ALBUTEROL
     Dates: start: 20020514, end: 20110902
  69. METRONIDAZOL [Concomitant]
     Active Substance: METRONIDAZOLE
     Dates: start: 20030424
  70. CIPROFLOXACIN. [Concomitant]
     Active Substance: CIPROFLOXACIN
     Dates: start: 20040113
  71. LISINOPRIL. [Concomitant]
     Active Substance: LISINOPRIL
     Dates: start: 20061215, end: 20090714
  72. AMITRIPTYLINE [Concomitant]
     Active Substance: AMITRIPTYLINE
     Dates: start: 20070502
  73. PREDNISONE. [Concomitant]
     Active Substance: PREDNISONE
     Dates: start: 20080820, end: 20160331
  74. DOXAZOSIN [Concomitant]
     Active Substance: DOXAZOSIN\DOXAZOSIN MESYLATE
     Dates: start: 20130214, end: 20160601
  75. FENTANYL. [Concomitant]
     Active Substance: FENTANYL
     Dates: start: 20111102
  76. VITAMIN B NOS [Concomitant]
     Active Substance: VITAMIN B
     Dates: start: 1998, end: 2017
  77. PANTOPRAZOLE [Suspect]
     Active Substance: PANTOPRAZOLE
     Indication: GASTROOESOPHAGEAL REFLUX DISEASE
     Route: 065
     Dates: start: 20080227
  78. DENAVIR [Concomitant]
     Active Substance: PENCICLOVIR
     Dates: start: 20001129, end: 20020703

REACTIONS (8)
  - Chronic kidney disease [Recovered/Resolved]
  - Hyperkalaemia [Fatal]
  - End stage renal disease [Fatal]
  - Renal failure [Recovered/Resolved]
  - Nephrogenic anaemia [Unknown]
  - Acute kidney injury [Recovered/Resolved]
  - Cardiac arrest [Fatal]
  - Renal tubular necrosis [Unknown]

NARRATIVE: CASE EVENT DATE: 20130809
